FAERS Safety Report 16833933 (Version 1)
Quarter: 2019Q3

REPORT INFORMATION
  Report Type: Spontaneous
  Country: US (occurrence: US)
  Receive Date: 20190920
  Receipt Date: 20190920
  Transmission Date: 20191005
  Serious: No
  Sender: FDA-Public Use
  Company Number: US-PFIZER INC-2019404171

PATIENT
  Age: 64 Year
  Sex: Female
  Weight: 102.4 kg

DRUGS (1)
  1. PREGABALIN. [Suspect]
     Active Substance: PREGABALIN
     Indication: ARTHRITIS
     Dosage: 150 MG, DAILY [SHE THINKS 75 MG CAPSULES BY MOUTH, ONE IN THE MORNING, ONE AT NIGHT, OR BOTH AT NIG]
     Route: 048
     Dates: start: 201908, end: 201908

REACTIONS (5)
  - Off label use [Unknown]
  - Dizziness [Recovered/Resolved]
  - Confusional state [Recovered/Resolved]
  - Nausea [Recovered/Resolved]
  - Product use in unapproved indication [Unknown]

NARRATIVE: CASE EVENT DATE: 201908
